FAERS Safety Report 8369371 (Version 3)
Quarter: 2013Q1

REPORT INFORMATION
  Report Type: Report from Study
  Country: US (occurrence: US)
  Receive Date: 20120128
  Receipt Date: 20130328
  Transmission Date: 20140127
  Serious: Yes (Other)
  Sender: FDA-Public Use
  Company Number: US-ABBOTT-11P-163-0718729-00

PATIENT
  Age: 59 None
  Sex: Female
  Weight: 88.53 kg

DRUGS (17)
  1. HUMIRA 40 MG/0.8 ML PEN [Suspect]
     Indication: CROHN^S DISEASE
     Dates: start: 20090519
  2. TOPROL [Concomitant]
     Indication: PRODUCT USED FOR UNKNOWN INDICATION
  3. ASACOL [Concomitant]
     Indication: PRODUCT USED FOR UNKNOWN INDICATION
  4. ZEGRATEN [Concomitant]
     Indication: PRODUCT USED FOR UNKNOWN INDICATION
  5. ZYRTEC [Concomitant]
     Indication: PRODUCT USED FOR UNKNOWN INDICATION
  6. TORSIMIDE [Concomitant]
     Indication: PRODUCT USED FOR UNKNOWN INDICATION
  7. CINNAMON [Concomitant]
     Indication: SUPPLEMENTATION THERAPY
  8. GARLIC [Concomitant]
     Indication: SUPPLEMENTATION THERAPY
  9. BIOTIN [Concomitant]
     Indication: PRODUCT USED FOR UNKNOWN INDICATION
  10. MULTIPLE VITAMINS [Concomitant]
     Indication: VITAMIN SUPPLEMENTATION
  11. B COMPLEX [Concomitant]
     Indication: VITAMIN SUPPLEMENTATION
  12. MILK THISTLE [Concomitant]
     Indication: SUPPLEMENTATION THERAPY
  13. ALOE VERA JUICE WITH CHOLOREA SLIVER [Concomitant]
     Indication: SUPPLEMENTATION THERAPY
     Dosage: JUICE
  14. ADVAIR [Concomitant]
     Indication: PRODUCT USED FOR UNKNOWN INDICATION
  15. POTASSIUM [Concomitant]
     Indication: PRODUCT USED FOR UNKNOWN INDICATION
  16. NEXIUM [Concomitant]
     Indication: PRODUCT USED FOR UNKNOWN INDICATION
  17. ASPIRIN [Concomitant]
     Indication: PRODUCT USED FOR UNKNOWN INDICATION

REACTIONS (12)
  - Pulmonary mass [Recovered/Resolved]
  - Knee arthroplasty [Unknown]
  - Knee arthroplasty [Unknown]
  - Nasopharyngitis [Not Recovered/Not Resolved]
  - Bronchial disorder [Recovering/Resolving]
  - Pyrexia [Unknown]
  - Sputum discoloured [Recovered/Resolved]
  - Injection site erythema [Recovered/Resolved]
  - Injection site erythema [Recovered/Resolved]
  - Pneumonia [Recovered/Resolved]
  - Pulmonary fibrosis [Unknown]
  - Lower respiratory tract infection [Unknown]
